FAERS Safety Report 5944958-8 (Version None)
Quarter: 2008Q4

REPORT INFORMATION
  Report Type: 
  Country: None (occurrence: None)
  Receive Date: 20081021
  Receipt Date: 20071213
  Transmission Date: 20090506
  Serious: Yes (Other)
  Sender: FDA-Public Use
  Company Number: US-WYE-H01739707

PATIENT
  Age: 45 Year
  Sex: Female

DRUGS (3)
  1. PREMARIN [Suspect]
  2. PREMPRO [Suspect]
  3. PROVERA [Suspect]

REACTIONS (1)
  - ENDOMETRIAL CANCER [None]
